FAERS Safety Report 5094416-0 (Version None)
Quarter: 2006Q3

REPORT INFORMATION
  Report Type: 
  Country: None (occurrence: None)
  Receive Date: 20060830
  Receipt Date: 20060817
  Transmission Date: 20061208
  Serious: Yes (Disabling)
  Sender: FDA-Public Use
  Company Number: GB200607005219

PATIENT
  Age: 63 Year
  Sex: Female
  Weight: 60 kg

DRUGS (4)
  1. ZYPREXA [Suspect]
     Indication: MANIA
     Dosage: 20 MG, ORAL
     Route: 048
     Dates: start: 20060601, end: 20060801
  2. LITHIUM (LITHIUM) [Concomitant]
  3. HYOSCINE HBR HYT [Concomitant]
  4. DIAZEPAM [Concomitant]

REACTIONS (4)
  - CONTUSION [None]
  - DROOLING [None]
  - OEDEMA PERIPHERAL [None]
  - SALIVARY HYPERSECRETION [None]
